FAERS Safety Report 5355652-9 (Version None)
Quarter: 2007Q2

REPORT INFORMATION
  Report Type: 
  Country: None (occurrence: None)
  Receive Date: 20070612
  Receipt Date: 20070612
  Transmission Date: 20071010
  Serious: No
  Sender: FDA-Public Use
  Company Number: None

PATIENT

DRUGS (1)
  1. MORPHINE SULFATE [Suspect]
     Dosage: INJECTABLE

REACTIONS (8)
  - BRADYCARDIA [None]
  - CIRCULATORY COLLAPSE [None]
  - EYE ROLLING [None]
  - MEDICATION ERROR [None]
  - OVERDOSE [None]
  - RESPIRATORY ARREST [None]
  - SKIN DISCOLOURATION [None]
  - TONGUE DISORDER [None]
